FAERS Safety Report 7040928-X (Version None)
Quarter: 2010Q4

REPORT INFORMATION
  Report Type: 
  Country: None (occurrence: None)
  Receive Date: 20101013
  Receipt Date: 20101001
  Transmission Date: 20110411
  Serious: Yes (Hospitalization)
  Sender: FDA-Public Use
  Company Number: JP-JNJFOC-20101001051

PATIENT
  Age: 15 Year
  Sex: Female
  Weight: 44 kg

DRUGS (37)
  1. REMICADE [Suspect]
     Indication: CROHN'S DISEASE
     Route: 042
  2. REMICADE [Suspect]
     Route: 042
  3. REMICADE [Suspect]
     Route: 042
  4. REMICADE [Suspect]
     Route: 042
  5. REMICADE [Suspect]
     Route: 042
  6. REMICADE [Suspect]
     Route: 042
  7. REMICADE [Suspect]
     Route: 042
  8. REMICADE [Suspect]
     Route: 042
  9. REMICADE [Suspect]
     Route: 042
  10. RHEUMATREX [Suspect]
     Indication: CROHN'S DISEASE
     Route: 048
  11. METHOTREXATE [Concomitant]
     Indication: CROHN'S DISEASE
     Route: 030
  12. PREDONINE [Concomitant]
     Indication: CROHN'S DISEASE
     Route: 048
  13. PREDONINE [Concomitant]
     Route: 048
  14. PREDONINE [Concomitant]
     Route: 048
  15. PREDONINE [Concomitant]
     Route: 048
  16. ANTIHISTAMINES [Concomitant]
     Indication: PREMEDICATION
  17. ANTIHISTAMINES [Concomitant]
  18. ANTIHISTAMINES [Concomitant]
  19. ANTIHISTAMINES [Concomitant]
  20. ANTIHISTAMINES [Concomitant]
  21. ANTIHISTAMINES [Concomitant]
  22. ANTIHISTAMINES [Concomitant]
  23. ANTIHISTAMINES [Concomitant]
  24. CORTICOSTEROID [Concomitant]
     Indication: PREMEDICATION
  25. CORTICOSTEROID [Concomitant]
  26. CORTICOSTEROID [Concomitant]
  27. CORTICOSTEROID [Concomitant]
  28. CORTICOSTEROID [Concomitant]
  29. CORTICOSTEROID [Concomitant]
  30. CORTICOSTEROID [Concomitant]
  31. CORTICOSTEROID [Concomitant]
  32. WARFARIN SODIUM [Concomitant]
     Indication: AORTIC THROMBOSIS
     Route: 048
  33. URSO 250 [Concomitant]
     Route: 048
  34. FOIPAN [Concomitant]
     Indication: PANCREATITIS ACUTE
     Route: 048
  35. MIRACLID [Concomitant]
     Indication: PANCREATITIS ACUTE
     Route: 042
  36. FOY [Concomitant]
     Indication: PANCREATITIS ACUTE
     Route: 042
  37. SANDOSTATIN [Concomitant]
     Indication: PANCREATITIS ACUTE

REACTIONS (1)
  - PNEUMONIA [None]
